FAERS Safety Report 8867179 (Version 1)
Quarter: 2012Q4

REPORT INFORMATION
  Report Type: 
  Country: US (occurrence: US)
  Receive Date: 20121025
  Receipt Date: 20121025
  Transmission Date: 20130627
  Serious: No
  Sender: FDA-Public Use
  Company Number: US-AMGEN-USASP2012015104

PATIENT
  Age: 52 Year
  Sex: Female
  Weight: 63.49 kg

DRUGS (9)
  1. ENBREL [Suspect]
     Indication: PRODUCT USED FOR UNKNOWN INDICATION
     Dosage: 25 mg, 2 times/wk
     Route: 058
  2. CELEBREX [Concomitant]
     Dosage: 400 mg, UNK
  3. METHOTREXATE [Concomitant]
     Dosage: 2.5 mg, UNK
  4. VITAMIN B [Concomitant]
     Dosage: UNK
  5. FISH OIL [Concomitant]
     Dosage: UNK
  6. VITAMIN D /00107901/ [Concomitant]
     Dosage: UNK
  7. ASPIRIN [Concomitant]
     Dosage: 81 mg, UNK
  8. HYDROCHLOROTH [Concomitant]
     Dosage: 50 mg, UNK
  9. MENOPAUSE                          /00115202/ [Concomitant]
     Dosage: UNK

REACTIONS (1)
  - Cellulitis [Recovering/Resolving]
